FAERS Safety Report 17556229 (Version 1)
Quarter: 2020Q1

REPORT INFORMATION
  Report Type: Spontaneous
  Country: US (occurrence: US)
  Receive Date: 20200310
  Receipt Date: 20200310
  Transmission Date: 20200409
  Serious: No
  Sender: FDA-Public Use
  Company Number: None

PATIENT

DRUGS (2)
  1. LIDOCAINE HCL INJECTION LIDOCAINE 4% [Suspect]
     Active Substance: LIDOCAINE HYDROCHLORIDE
  2. LIDOCAINE HCL INJECTION LIDOCAINE HCL 1% [Suspect]
     Active Substance: LIDOCAINE HYDROCHLORIDE
     Dosage: ?          OTHER DOSE:50MG/5ML;?

REACTIONS (1)
  - Product label confusion [None]
